FAERS Safety Report 8023958-0 (Version None)
Quarter: 2012Q1

REPORT INFORMATION
  Report Type: 
  Country: None (occurrence: None)
  Receive Date: 20120105
  Receipt Date: 20120103
  Transmission Date: 20120608
  Serious: Yes (Other)
  Sender: FDA-Public Use
  Company Number: US-PFIZER INC-2012001460

PATIENT
  Sex: Female

DRUGS (8)
  1. ADVIL PM [Suspect]
     Indication: PAIN
     Dosage: UNK
     Route: 048
     Dates: end: 20120102
  2. OMEGA 9 TRIGLYCERIDES [Concomitant]
     Dosage: UNK
  3. VITAMIN D [Concomitant]
     Dosage: UNK
  4. MULTI-VITAMINS [Concomitant]
     Dosage: UNK
  5. ADVIL PM [Suspect]
     Indication: SLEEP DISORDER
  6. VITAMIN B COMPLEX CAP [Concomitant]
     Dosage: UNK
  7. CALCIUM [Concomitant]
     Dosage: UNK
  8. LOVAZA [Concomitant]
     Dosage: UNK

REACTIONS (6)
  - PALPITATIONS [None]
  - TREMOR [None]
  - BLOOD CHOLESTEROL INCREASED [None]
  - FEELING COLD [None]
  - NASOPHARYNGITIS [None]
  - DIABETES MELLITUS [None]
